FAERS Safety Report 9107888 (Version 1)
Quarter: 2013Q1

REPORT INFORMATION
  Report Type: Spontaneous
  Country: ES (occurrence: ES)
  Receive Date: 20130221
  Receipt Date: 20130221
  Transmission Date: 20140127
  Serious: Yes (Hospitalization, Other)
  Sender: FDA-Public Use
  Company Number: ES-RANBAXY-2013RR-65204

PATIENT
  Age: 17 Year
  Sex: Female

DRUGS (1)
  1. PARACETAMOL [Suspect]
     Dosage: 9 G
     Route: 048

REACTIONS (4)
  - Nephropathy toxic [Unknown]
  - Renal tubular necrosis [Unknown]
  - Intentional overdose [Unknown]
  - Suicide attempt [Unknown]
